FAERS Safety Report 8803575 (Version 1)
Quarter: 2012Q4

REPORT INFORMATION
  Report Type: 
  Country: FR (occurrence: FR)
  Receive Date: 20120924
  Receipt Date: 20120924
  Transmission Date: 20130627
  Serious: Yes (Hospitalization)
  Sender: FDA-Public Use
  Company Number: FR-ASTRAZENECA-2012SE72461

PATIENT
  Age: 65 Year
  Sex: Female

DRUGS (8)
  1. DIPRIVAN [Suspect]
     Indication: GENERAL ANAESTHESIA
     Route: 042
     Dates: start: 20090726, end: 20090726
  2. CELOCURINE [Suspect]
     Indication: GENERAL ANAESTHESIA
     Route: 042
     Dates: start: 20090726, end: 20090726
  3. SUFENTA [Suspect]
     Indication: GENERAL ANAESTHESIA
     Route: 042
     Dates: start: 20090726, end: 20090726
  4. TRACRIUM [Suspect]
     Indication: GENERAL ANAESTHESIA
     Route: 042
     Dates: start: 20090726, end: 20090726
  5. HYZAAR [Concomitant]
  6. LEVOTHYROX [Concomitant]
  7. TOCO [Concomitant]
     Dosage: 500
  8. PIASCLEDINE [Concomitant]

REACTIONS (2)
  - Procedural hypotension [Recovered/Resolved]
  - Rash [Recovered/Resolved]
